FAERS Safety Report 7588944-3 (Version None)
Quarter: 2011Q3

REPORT INFORMATION
  Report Type: 
  Country: None (occurrence: None)
  Receive Date: 20110705
  Receipt Date: 20110614
  Transmission Date: 20111222
  Serious: Yes (Other)
  Sender: FDA-Public Use
  Company Number: US-BAYER-2011-007243

PATIENT
  Age: 29 Year
  Sex: Female
  Weight: 104 kg

DRUGS (4)
  1. HYDROCODONE BITARTRATE [Concomitant]
  2. PROTONIX [Concomitant]
  3. YAZ [Suspect]
     Indication: ACNE
     Dosage: UNK
     Route: 048
     Dates: start: 20080901, end: 20090101
  4. YAZ [Suspect]
     Indication: CONTRACEPTION

REACTIONS (9)
  - PAIN [None]
  - ABDOMINAL PAIN [None]
  - CHOLECYSTITIS CHRONIC [None]
  - EMOTIONAL DISTRESS [None]
  - BACK PAIN [None]
  - NAUSEA [None]
  - MUSCULOSKELETAL PAIN [None]
  - VOMITING [None]
  - GALLBLADDER DISORDER [None]
